FAERS Safety Report 4576299-8 (Version None)
Quarter: 2005Q1

REPORT INFORMATION
  Report Type: 
  Country: None (occurrence: None)
  Receive Date: 20050207
  Receipt Date: 20050204
  Transmission Date: 20050727
  Serious: No
  Sender: FDA-Public Use
  Company Number: 2004210424FR

PATIENT
  Sex: Female
  Weight: 58 kg

DRUGS (1)
  1. CAVERJECT [Suspect]
     Indication: ILL-DEFINED DISORDER
     Dosage: INTRACAVERNO-SA
     Dates: start: 20040301, end: 20040301

REACTIONS (2)
  - PREGNANCY OF PARTNER [None]
  - TRANSMISSION OF DRUG VIA SEMEN [None]
